FAERS Safety Report 17737006 (Version 1)
Quarter: 2020Q2

REPORT INFORMATION
  Report Type: Spontaneous
  Country: US (occurrence: US)
  Receive Date: 20200502
  Receipt Date: 20200502
  Transmission Date: 20200714
  Serious: Yes (Other)
  Sender: FDA-Public Use
  Company Number: US-EMCURE PHARMACEUTICALS LTD-2020-EPL-000528

PATIENT
  Age: 18 Year
  Sex: Female

DRUGS (9)
  1. CYCLOPHOSPHAMIDE. [Suspect]
     Active Substance: CYCLOPHOSPHAMIDE
     Indication: DIFFUSE LARGE B-CELL LYMPHOMA
     Dosage: FOUR CYCLES,R-HYPER-CVAD PROTOCOL
  2. DEXAMETHASONE. [Suspect]
     Active Substance: DEXAMETHASONE
     Indication: DIFFUSE LARGE B-CELL LYMPHOMA
     Dosage: FOUR CYCLES,R-HYPER-CVAD PROTOCOL
  3. METHOTREXATE. [Suspect]
     Active Substance: METHOTREXATE
     Dosage: COMPLETED SIX TREATMENTS OF PROPHYLACTIC CHEMOTHERAPY)
     Route: 037
  4. METHOTREXATE. [Suspect]
     Active Substance: METHOTREXATE
     Indication: DIFFUSE LARGE B-CELL LYMPHOMA
     Dosage: FOUR CYCLES,R-HYPER-CVAD PROTOCOL
  5. ENTECAVIR. [Concomitant]
     Active Substance: ENTECAVIR
     Indication: ANTIVIRAL PROPHYLAXIS
     Dosage: 0.5 MILLIGRAM, DAILY
  6. CYTARABINE. [Suspect]
     Active Substance: CYTARABINE
     Indication: DIFFUSE LARGE B-CELL LYMPHOMA
     Dosage: FOUR CYCLES AS PER THE R-HYPER-CVAD PROTOCOL
  7. RITUXIMAB. [Suspect]
     Active Substance: RITUXIMAB
     Indication: DIFFUSE LARGE B-CELL LYMPHOMA
     Dosage: FOUR CYCLES,R-HYPER-CVAD PROTOCOL
  8. VINCRISTINE [Suspect]
     Active Substance: VINCRISTINE
     Indication: DIFFUSE LARGE B-CELL LYMPHOMA
     Dosage: FOUR CYCLES,R-HYPER-CVAD PROTOCOL
  9. DOXORUBICIN [Suspect]
     Active Substance: DOXORUBICIN
     Indication: DIFFUSE LARGE B-CELL LYMPHOMA
     Dosage: FOUR CYCLES,R-HYPER-CVAD PROTOCOL

REACTIONS (7)
  - Febrile neutropenia [Unknown]
  - Pericardial effusion [Unknown]
  - Superior sagittal sinus thrombosis [Unknown]
  - Anaemia [Unknown]
  - Spinal pain [Unknown]
  - Thoracic vertebral fracture [Unknown]
  - Asthenia [Unknown]
